FAERS Safety Report 17857149 (Version 1)
Quarter: 2020Q2

REPORT INFORMATION
  Report Type: Spontaneous
  Country: GB (occurrence: GB)
  Receive Date: 20200603
  Receipt Date: 20200603
  Transmission Date: 20200714
  Serious: Yes (Other)
  Sender: FDA-Public Use
  Company Number: NVSC2020GB151802

PATIENT
  Age: 33 Year
  Sex: Female
  Weight: 69.85 kg

DRUGS (1)
  1. DOXYCYCLINE. [Suspect]
     Active Substance: DOXYCYCLINE
     Indication: ACNE
     Dosage: 100 MG
     Route: 048
     Dates: start: 20191001, end: 20200311

REACTIONS (11)
  - Mood swings [Recovering/Resolving]
  - Pyrexia [Recovering/Resolving]
  - Decreased appetite [Recovering/Resolving]
  - Insomnia [Recovering/Resolving]
  - Anxiety [Recovering/Resolving]
  - Nausea [Recovering/Resolving]
  - Metrorrhagia [Recovering/Resolving]
  - Tinnitus [Not Recovered/Not Resolved]
  - Chest discomfort [Recovering/Resolving]
  - Headache [Recovering/Resolving]
  - Tearfulness [Unknown]

NARRATIVE: CASE EVENT DATE: 20191001
